FAERS Safety Report 9074977 (Version 1)
Quarter: 2013Q1

REPORT INFORMATION
  Report Type: Spontaneous
  Country: US (occurrence: US)
  Receive Date: 20130128
  Receipt Date: 20130128
  Transmission Date: 20140127
  Serious: No
  Sender: FDA-Public Use
  Company Number: US-GLAXOSMITHKLINE-A0964805A

PATIENT
  Age: 51 Year
  Sex: Female

DRUGS (2)
  1. MEPRON [Suspect]
     Indication: PRODUCT USED FOR UNKNOWN INDICATION
     Dosage: 5CC TWICE PER DAY
     Route: 048
     Dates: start: 20120120
  2. BIAXIN [Concomitant]
     Dosage: 1000MG TWICE PER DAY
     Route: 048

REACTIONS (1)
  - Xanthopsia [Not Recovered/Not Resolved]
